FAERS Safety Report 4939205-X (Version None)
Quarter: 2006Q1

REPORT INFORMATION
  Report Type: 
  Country: None (occurrence: None)
  Receive Date: 20060309
  Receipt Date: 20060309
  Transmission Date: 20060701
  Serious: No
  Sender: FDA-Public Use
  Company Number: None

PATIENT
  Sex: Female
  Weight: 63.5036 kg

DRUGS (4)
  1. LAMISIL [Suspect]
     Indication: ONYCHOMYCOSIS
     Dosage: 250MG  QD  PO
     Route: 048
     Dates: start: 20040727, end: 20041027
  2. EVISTA [Concomitant]
  3. PLAQUENIL [Concomitant]
  4. IMITREX [Concomitant]

REACTIONS (1)
  - DYSGEUSIA [None]
